FAERS Safety Report 6490215-3 (Version None)
Quarter: 2009Q4

REPORT INFORMATION
  Report Type: 
  Country: None (occurrence: None)
  Receive Date: 20091211
  Receipt Date: 20091209
  Transmission Date: 20100525
  Serious: Yes (Other)
  Sender: FDA-Public Use
  Company Number: US-ROCHE-673831

PATIENT
  Age: 53 Year
  Sex: Male
  Weight: 79.5 kg

DRUGS (1)
  1. NAPROSYN [Suspect]
     Indication: DRUG USE FOR UNKNOWN INDICATION
     Route: 065

REACTIONS (2)
  - CHOLECYSTECTOMY [None]
  - DUODENAL ULCER PERFORATION [None]
